FAERS Safety Report 24874253 (Version 1)
Quarter: 2025Q1

REPORT INFORMATION
  Report Type: Spontaneous
  Country: HU (occurrence: HU)
  Receive Date: 20250122
  Receipt Date: 20250122
  Transmission Date: 20250409
  Serious: Yes (Death, Hospitalization, Other)
  Sender: BAYER HEALTHCARE PHARMACEUTICALS INC.
  Company Number: HU-BAYER-2025A008504

PATIENT
  Age: 70 Year

DRUGS (1)
  1. ULTRAVIST [Suspect]
     Active Substance: IOPROMIDE
     Indication: Computerised tomogram
     Dates: start: 20250110, end: 20250110

REACTIONS (4)
  - Pulmonary embolism [Fatal]
  - Malaise [None]
  - Cyanosis [None]
  - Loss of consciousness [None]

NARRATIVE: CASE EVENT DATE: 20250110
